FAERS Safety Report 9516527 (Version 2)
Quarter: 2013Q4

REPORT INFORMATION
  Report Type: Spontaneous
  Country: US (occurrence: US)
  Receive Date: 20130911
  Receipt Date: 20131024
  Transmission Date: 20140711
  Serious: Yes (Other)
  Sender: FDA-Public Use
  Company Number: US-ROXANE LABORATORIES, INC.-2013-RO-01499RO

PATIENT
  Age: 16 Year
  Sex: Female

DRUGS (3)
  1. LEVETIRACETAM [Suspect]
     Indication: EPILEPSY
     Dates: start: 20130330
  2. KLONOPIN [Concomitant]
     Dosage: 1 MG
  3. ZONISAMIDE [Concomitant]
     Indication: EPILEPSY
     Dosage: 100 MG

REACTIONS (1)
  - Gamma-glutamyltransferase increased [Not Recovered/Not Resolved]
